FAERS Safety Report 8198654-X (Version None)
Quarter: 2012Q1

REPORT INFORMATION
  Report Type: 
  Country: None (occurrence: None)
  Receive Date: 20120309
  Receipt Date: 20120302
  Transmission Date: 20120608
  Serious: Yes (Other)
  Sender: FDA-Public Use
  Company Number: US-TEVA-325863USA

PATIENT
  Sex: Female
  Weight: 58.566 kg

DRUGS (3)
  1. CARISOPRODOL [Concomitant]
     Indication: OSTEOARTHRITIS
  2. SAVELLA [Concomitant]
     Indication: FIBROMYALGIA
     Dosage: 200 MILLIGRAM;
  3. GABAPENTIN [Suspect]
     Indication: CONVULSION
     Dates: start: 19960301

REACTIONS (2)
  - BACK PAIN [None]
  - BACK DISORDER [None]
